FAERS Safety Report 17872026 (Version 4)
Quarter: 2020Q3

REPORT INFORMATION
  Report Type: Spontaneous
  Country: JP (occurrence: JP)
  Receive Date: 20200608
  Receipt Date: 20200810
  Transmission Date: 20201103
  Serious: Yes (Death, Life-Threatening, Hospitalization, Other)
  Sender: FDA-Public Use
  Company Number: JP-JNJFOC-20200600410

PATIENT
  Age: 92 Year
  Sex: Male
  Weight: 50.1 kg

DRUGS (10)
  1. NIZORAL [Concomitant]
     Active Substance: KETOCONAZOLE
     Dosage: GROIN
     Route: 003
     Dates: start: 20200521
  2. PREDONINE [Concomitant]
     Active Substance: PREDNISOLONE
     Dosage: AFTER BREAKFAST,AFTER LUNCH
     Route: 048
     Dates: start: 20200520, end: 20200527
  3. ZYTIGA [Suspect]
     Active Substance: ABIRATERONE ACETATE
     Route: 048
     Dates: start: 20200520, end: 20200526
  4. WHITE PETROLATUM [Concomitant]
     Active Substance: PETROLATUM
     Route: 065
     Dates: start: 20200520
  5. BESOFTEN [Concomitant]
     Active Substance: PENTOSAN POLYSULFATE SODIUM
     Dosage: BODY
     Route: 003
     Dates: start: 20200520
  6. ZINC OXIDE. [Concomitant]
     Active Substance: ZINC OXIDE
     Dosage: GROIN
     Route: 003
     Dates: start: 20200521
  7. POTASSIUM CHLORIDE. [Concomitant]
     Active Substance: POTASSIUM CHLORIDE
     Indication: HYPOKALAEMIA
     Dosage: AFTER BREAKFAST,AFTER DINNER
     Route: 048
     Dates: start: 20200525, end: 20200527
  8. MEMANTINE HYDROCHLORIDE. [Concomitant]
     Active Substance: MEMANTINE HYDROCHLORIDE
     Dosage: AFTER DINNER
     Route: 048
     Dates: start: 20200520, end: 20200526
  9. ZYTIGA [Suspect]
     Active Substance: ABIRATERONE ACETATE
     Indication: HORMONE-REFRACTORY PROSTATE CANCER
     Dosage: 2 AFTER BREAKFAST
     Route: 048
     Dates: start: 20200430, end: 20200507
  10. PREDONINE [Concomitant]
     Active Substance: PREDNISOLONE
     Indication: PROPHYLAXIS
     Dosage: AFTER BREAKFAST,AFTER LUNCH
     Route: 048
     Dates: start: 20200430, end: 20200507

REACTIONS (9)
  - Arthralgia [Recovered/Resolved]
  - Urinary tract infection [Not Recovered/Not Resolved]
  - Sepsis [Fatal]
  - Febrile neutropenia [Fatal]
  - Bladder cancer [Not Recovered/Not Resolved]
  - Delirium [Recovering/Resolving]
  - Pyelocaliectasis [Not Recovered/Not Resolved]
  - Respiratory disorder [Unknown]
  - Gait disturbance [Not Recovered/Not Resolved]

NARRATIVE: CASE EVENT DATE: 20200507
